FAERS Safety Report 15686415 (Version 2)
Quarter: 2018Q4

REPORT INFORMATION
  Report Type: Report from Study
  Country: TW (occurrence: TW)
  Receive Date: 20181204
  Receipt Date: 20181212
  Transmission Date: 20190205
  Serious: Yes (Hospitalization)
  Sender: FDA-Public Use
  Company Number: TW-JNJFOC-20181141869

PATIENT
  Age: 58 Year
  Sex: Female
  Weight: 46.6 kg

DRUGS (1)
  1. SIMPONI [Suspect]
     Active Substance: GOLIMUMAB
     Indication: RHEUMATOID ARTHRITIS
     Route: 058
     Dates: start: 20181031

REACTIONS (6)
  - Dry mouth [Unknown]
  - Urinary tract infection [Not Recovered/Not Resolved]
  - Dry eye [Unknown]
  - Laryngeal oedema [Unknown]
  - Upper respiratory tract infection [Not Recovered/Not Resolved]
  - Lymph node palpable [Unknown]

NARRATIVE: CASE EVENT DATE: 2018
